FAERS Safety Report 7525384-7 (Version None)
Quarter: 2011Q2

REPORT INFORMATION
  Report Type: 
  Country: None (occurrence: None)
  Receive Date: 20110606
  Receipt Date: 20110531
  Transmission Date: 20111010
  Serious: Yes (Other)
  Sender: FDA-Public Use
  Company Number: EE-ROCHE-706267

PATIENT
  Sex: Female
  Weight: 56 kg

DRUGS (5)
  1. MEDROL [Concomitant]
     Indication: RHEUMATOID ARTHRITIS
     Dosage: FREQUENCY: ONCE A DAY.
     Route: 048
     Dates: start: 20081007
  2. METHOTREXATE [Suspect]
     Indication: RHEUMATOID ARTHRITIS
     Dosage: LAST DOSE PRIOR TO SAE: 28 APRIL 2010, PERMANENTLY DISCONTINUED.
     Route: 048
     Dates: start: 20091102, end: 20100520
  3. FOLIC ACID [Concomitant]
     Indication: RHEUMATOID ARTHRITIS
     Route: 048
     Dates: start: 20081007
  4. PLAQUENIL [Concomitant]
     Indication: RHEUMATOID ARTHRITIS
     Route: 048
     Dates: start: 20100426
  5. TOCILIZUMAB [Suspect]
     Indication: RHEUMATOID ARTHRITIS
     Dosage: LAST DOSE PRIOR TO SAE: 26 APRIL 2010, PERMANENTLY DISCONTINUED.
     Route: 042
     Dates: start: 20091102, end: 20100520

REACTIONS (1)
  - ABORTION SPONTANEOUS [None]
